FAERS Safety Report 22162036 (Version 1)
Quarter: 2023Q1

REPORT INFORMATION
  Report Type: Spontaneous
  Country: CN (occurrence: CN)
  Receive Date: 20230331
  Receipt Date: 20230331
  Transmission Date: 20230418
  Serious: Yes (Other)
  Sender: FDA-Public Use
  Company Number: CN-BRISTOL-MYERS SQUIBB COMPANY-2023-045111

PATIENT
  Sex: Female

DRUGS (1)
  1. BARACLUDE [Suspect]
     Active Substance: ENTECAVIR
     Indication: Hepatitis B

REACTIONS (10)
  - Pyrexia [Unknown]
  - Cough [Unknown]
  - Hepatic pain [Unknown]
  - Oral discomfort [Unknown]
  - Abdominal discomfort [Unknown]
  - Tongue discomfort [Unknown]
  - Seizure [Unknown]
  - Abdominal pain upper [Unknown]
  - Viral infection [Unknown]
  - Illness [Unknown]
